FAERS Safety Report 14654901 (Version 2)
Quarter: 2018Q2

REPORT INFORMATION
  Report Type: Spontaneous
  Country: US (occurrence: US)
  Receive Date: 20180319
  Receipt Date: 20180515
  Transmission Date: 20180711
  Serious: No
  Sender: FDA-Public Use
  Company Number: US-GLAXOSMITHKLINE-US2018040362

PATIENT
  Sex: Female

DRUGS (4)
  1. NICORETTE CINNAMON SURGE [Suspect]
     Active Substance: NICOTINE
     Indication: SMOKING CESSATION THERAPY
     Dosage: UNK
  2. NICORETTE CINNAMON SURGE [Suspect]
     Active Substance: NICOTINE
     Dosage: UNK
  3. NICORETTE CINNAMON SURGE [Suspect]
     Active Substance: NICOTINE
     Dosage: UNK
  4. NICORETTE [Suspect]
     Active Substance: NICOTINE
     Indication: SMOKING CESSATION THERAPY
     Dosage: UNK

REACTIONS (3)
  - Dyspepsia [Unknown]
  - Nausea [Unknown]
  - Product quality issue [Unknown]
